FAERS Safety Report 14977268 (Version 1)
Quarter: 2018Q2

REPORT INFORMATION
  Report Type: Spontaneous
  Country: TW (occurrence: TW)
  Receive Date: 20180606
  Receipt Date: 20180606
  Transmission Date: 20180711
  Serious: Yes (Hospitalization, Other)
  Sender: FDA-Public Use
  Company Number: TW-UNICHEM PHARMACEUTICALS (USA) INC-UCM201805-000127

PATIENT
  Age: 51 Year
  Sex: Female

DRUGS (5)
  1. QUETIAPINE. [Suspect]
     Active Substance: QUETIAPINE
     Indication: PSYCHOTIC DISORDER
  2. AMISULPRIDE [Concomitant]
     Active Substance: AMISULPRIDE
  3. DIVALPROEX SODIUM. [Concomitant]
     Active Substance: DIVALPROEX SODIUM
     Indication: PSYCHOTIC DISORDER
  4. QUETIAPINE. [Suspect]
     Active Substance: QUETIAPINE
     Indication: MANIA
  5. DIVALPROEX SODIUM. [Concomitant]
     Active Substance: DIVALPROEX SODIUM
     Indication: MANIA

REACTIONS (2)
  - Ileus paralytic [Recovered/Resolved]
  - Hypothyroidism [Recovering/Resolving]
